FAERS Safety Report 9671109 (Version 1)
Quarter: 2013Q4

REPORT INFORMATION
  Report Type: Spontaneous
  Country: US (occurrence: US)
  Receive Date: 20131106
  Receipt Date: 20131106
  Transmission Date: 20140711
  Serious: No
  Sender: FDA-Public Use
  Company Number: US-PFIZER INC-2013313749

PATIENT
  Age: 72 Year
  Sex: Male

DRUGS (5)
  1. SUTENT [Suspect]
     Indication: RENAL CANCER
     Dosage: 50 MG, UNK
     Dates: start: 20131017
  2. SIMVASTATIN [Concomitant]
     Dosage: UNK
  3. PANTOPRAZOLE SODIUM [Concomitant]
     Dosage: UNK
  4. NIACIN [Concomitant]
  5. FENOFIBRATE [Concomitant]

REACTIONS (3)
  - Nausea [Unknown]
  - Muscular weakness [Unknown]
  - Decreased appetite [Unknown]
